FAERS Safety Report 6530455-8 (Version None)
Quarter: 2010Q1

REPORT INFORMATION
  Report Type: 
  Country: None (occurrence: None)
  Receive Date: 20100106
  Receipt Date: 20100106
  Transmission Date: 20100710
  Serious: Yes (Hospitalization, Disabling, Other)
  Sender: FDA-Public Use
  Company Number: None

PATIENT
  Sex: Male

DRUGS (4)
  1. ABILIFY [Suspect]
     Dosage: CHECK MEDICAL RECORDS AT OSH
  2. SEREQUEL [Suspect]
  3. INVEGA [Suspect]
  4. GEODON [Suspect]

REACTIONS (4)
  - ANXIETY [None]
  - HORMONE LEVEL ABNORMAL [None]
  - HYPOAESTHESIA [None]
  - THYROID FUNCTION TEST ABNORMAL [None]
